FAERS Safety Report 12736987 (Version 2)
Quarter: 2016Q3

REPORT INFORMATION
  Report Type: Spontaneous
  Country: EC (occurrence: EC)
  Receive Date: 20160913
  Receipt Date: 20160920
  Transmission Date: 20161109
  Serious: Yes (Hospitalization, Other)
  Sender: FDA-Public Use
  Company Number: EC-ASTELLAS-2016US035004

PATIENT
  Age: 77 Year
  Sex: Male

DRUGS (1)
  1. XTANDI [Suspect]
     Active Substance: ENZALUTAMIDE
     Indication: HORMONE-REFRACTORY PROSTATE CANCER
     Route: 048
     Dates: start: 20160801, end: 20160901

REACTIONS (4)
  - Nausea [Unknown]
  - Platelet count decreased [Unknown]
  - Vomiting [Unknown]
  - Gastritis [Unknown]

NARRATIVE: CASE EVENT DATE: 20160901
